FAERS Safety Report 9409696 (Version 1)
Quarter: 2013Q2

REPORT INFORMATION
  Report Type: Spontaneous
  Country: US (occurrence: None)
  Receive Date: 20130605
  Receipt Date: 20130605
  Transmission Date: 20140414
  Serious: Yes (Hospitalization)
  Sender: FDA-Public Use
  Company Number: 2013TP000292

PATIENT
  Age: 88 Year
  Sex: Female

DRUGS (1)
  1. LIDODERM (5 PCT) [Suspect]
     Indication: MUSCULOSKELETAL PAIN
     Route: 061

REACTIONS (1)
  - Thrombosis [None]
